FAERS Safety Report 7249112-8 (Version None)
Quarter: 2011Q1

REPORT INFORMATION
  Report Type: 
  Country: None (occurrence: None)
  Receive Date: 20110128
  Receipt Date: 20110119
  Transmission Date: 20110831
  Serious: Yes (Other)
  Sender: FDA-Public Use
  Company Number: US-SANOFI-AVENTIS-2011SA004737

PATIENT
  Age: 59 Year
  Sex: Male

DRUGS (6)
  1. DETROL [Concomitant]
  2. TAMSULOSIN HCL [Concomitant]
  3. UROXATRAL [Suspect]
     Route: 048
     Dates: start: 20110101, end: 20110101
  4. LIPITOR [Concomitant]
  5. LANTUS [Suspect]
     Route: 058
  6. HUMALOG [Suspect]
     Route: 065

REACTIONS (6)
  - LOSS OF CONSCIOUSNESS [None]
  - PULSE ABSENT [None]
  - MALAISE [None]
  - DIZZINESS [None]
  - BLOOD GLUCOSE INCREASED [None]
  - ABDOMINAL DISCOMFORT [None]
